FAERS Safety Report 5165283-1 (Version None)
Quarter: 2006Q4

REPORT INFORMATION
  Report Type: 
  Country: None (occurrence: None)
  Receive Date: 20061124
  Receipt Date: 20061110
  Transmission Date: 20070319
  Serious: Yes (Other)
  Sender: FDA-Public Use
  Company Number: 2006142215

PATIENT
  Age: 67 Year
  Sex: Female

DRUGS (1)
  1. TOLTERODINE TARTRATE [Suspect]
     Indication: POLLAKIURIA
     Dosage: 2 MG (1 IN 1 D), ORAL
     Route: 048
     Dates: start: 20061001

REACTIONS (2)
  - CONDITION AGGRAVATED [None]
  - HYPERKINESIA [None]
